FAERS Safety Report 18774987 (Version 1)
Quarter: 2021Q1

REPORT INFORMATION
  Report Type: Spontaneous
  Country: US (occurrence: US)
  Receive Date: 20210122
  Receipt Date: 20210122
  Transmission Date: 20210419
  Serious: Yes (Other)
  Sender: FDA-Public Use
  Company Number: US-GW PHARMA-202101USGW00199

PATIENT

DRUGS (2)
  1. VIGABATRIN. [Concomitant]
     Active Substance: VIGABATRIN
     Indication: PRODUCT USED FOR UNKNOWN INDICATION
     Dosage: UNK
     Route: 065
  2. EPIDIOLEX [Suspect]
     Active Substance: CANNABIDIOL
     Indication: EPILEPSY
     Dosage: 7.11 MG/KG/DAY, 100 MILLIGRAM, BID
     Route: 048
     Dates: start: 201902

REACTIONS (3)
  - Product dose omission issue [Unknown]
  - Intentional removal of drug delivery system by patient [Unknown]
  - Seizure [Unknown]

NARRATIVE: CASE EVENT DATE: 20210111
